FAERS Safety Report 9271011 (Version 2)
Quarter: 2013Q2

REPORT INFORMATION
  Report Type: Spontaneous
  Country: CN (occurrence: CN)
  Receive Date: 20130506
  Receipt Date: 20130513
  Transmission Date: 20140414
  Serious: Yes (Death)
  Sender: FDA-Public Use
  Company Number: CN-GE HEALTHCARE MEDICAL DIAGNOSTICS-VISP-PR-1304S-0512

PATIENT
  Age: 84 Year
  Sex: Male
  Weight: 75 kg

DRUGS (5)
  1. VISIPAQUE [Suspect]
     Indication: PRODUCT USED FOR UNKNOWN INDICATION
     Route: 013
     Dates: start: 20130318, end: 20130318
  2. VISIPAQUE [Suspect]
     Indication: DIAGNOSTIC PROCEDURE
  3. ASPIRIN [Concomitant]
  4. PLAVIX [Concomitant]
  5. BISOPROLOL [Concomitant]

REACTIONS (3)
  - Dermatitis exfoliative [Fatal]
  - Hypersensitivity [Fatal]
  - Myocardial infarction [Fatal]
